FAERS Safety Report 7377660-9 (Version None)
Quarter: 2011Q1

REPORT INFORMATION
  Report Type: 
  Country: None (occurrence: None)
  Receive Date: 20110328
  Receipt Date: 20110318
  Transmission Date: 20110831
  Serious: Yes (Death, Other)
  Sender: FDA-Public Use
  Company Number: NO-SANOFI-AVENTIS-2011SA005632

PATIENT
  Age: 40 Year
  Sex: Female

DRUGS (2)
  1. TAXOTERE [Suspect]
     Indication: BREAST CANCER
     Route: 042
  2. RITONAVIR [Suspect]
     Indication: HIV INFECTION
     Route: 065

REACTIONS (5)
  - DRUG INTERACTION [None]
  - SEPSIS [None]
  - SKIN TOXICITY [None]
  - NEUTROPENIA [None]
  - MULTI-ORGAN FAILURE [None]
